FAERS Safety Report 5416763-2 (Version None)
Quarter: 2007Q3

REPORT INFORMATION
  Report Type: 
  Country: None (occurrence: None)
  Receive Date: 20070816
  Receipt Date: 20070807
  Transmission Date: 20080115
  Serious: Yes (Hospitalization)
  Sender: FDA-Public Use
  Company Number: AT-AMGEN-US232873

PATIENT
  Age: 42 Year
  Sex: Female
  Weight: 68 kg

DRUGS (2)
  1. ENBREL [Suspect]
     Indication: RHEUMATOID ARTHRITIS
     Dates: start: 20050301, end: 20070411
  2. ENBREL [Suspect]
     Dates: start: 20070412, end: 20070601

REACTIONS (2)
  - SCINTILLATING SCOTOMA [None]
  - VERTIGO [None]
